FAERS Safety Report 9758636 (Version 1)
Quarter: 2013Q4

REPORT INFORMATION
  Report Type: Spontaneous
  Country: US (occurrence: None)
  Receive Date: 20131216
  Receipt Date: 20131216
  Transmission Date: 20140711
  Serious: Yes (Disabling)
  Sender: FDA-Public Use
  Company Number: 1208USA011340

PATIENT
  Age: 69 Year
  Sex: Female

DRUGS (1)
  1. HYZAAR (LOSARTAN POTASSIUM (+) HYDROCHLOROTHIAZIDE) TABLET [Suspect]

REACTIONS (1)
  - Dizziness [None]
